FAERS Safety Report 9191736 (Version 1)
Quarter: 2013Q1

REPORT INFORMATION
  Report Type: Spontaneous
  Country: PH (occurrence: PH)
  Receive Date: 20130326
  Receipt Date: 20130326
  Transmission Date: 20140127
  Serious: Yes (Death)
  Sender: FDA-Public Use
  Company Number: PHHY2013PH029011

PATIENT
  Age: 77 Year
  Sex: Female

DRUGS (1)
  1. EXFORGE HCT [Suspect]
     Indication: BLOOD PRESSURE SYSTOLIC INCREASED
     Dosage: 1 DF (160 MG VALS, 5 MG AMLO ANF 12.5 MG HCTZ), UNK

REACTIONS (1)
  - Death [Fatal]
